FAERS Safety Report 4932282-1 (Version None)
Quarter: 2006Q1

REPORT INFORMATION
  Report Type: 
  Country: None (occurrence: None)
  Receive Date: 20060228
  Receipt Date: 20060215
  Transmission Date: 20060701
  Serious: Yes (Other)
  Sender: FDA-Public Use
  Company Number: 2006024627

PATIENT
  Age: 15 Year
  Sex: Male

DRUGS (3)
  1. PREDNISOLONE [Suspect]
     Indication: ILL-DEFINED DISORDER
  2. CYCLOSPORINE [Suspect]
     Indication: ILL-DEFINED DISORDER
     Dosage: 350 MG (350 MG, 1 IN 1 D), ORAL
     Route: 048
  3. MYCOPHENOLOATE MOFETIL (MYCOPHENOLATE MOFETIL) [Suspect]
     Indication: ILL-DEFINED DISORDER
     Dosage: 1 GRAM

REACTIONS (3)
  - HYPERPLASIA [None]
  - LYMPHOPROLIFERATIVE DISORDER [None]
  - SCAR [None]
